FAERS Safety Report 7962456-7 (Version None)
Quarter: 2011Q4

REPORT INFORMATION
  Report Type: 
  Country: None (occurrence: None)
  Receive Date: 20111207
  Receipt Date: 20111128
  Transmission Date: 20120403
  Serious: Yes (Other)
  Sender: FDA-Public Use
  Company Number: CA-ABBOTT-11P-028-0878858-00

PATIENT
  Sex: Female
  Weight: 102.15 kg

DRUGS (6)
  1. EPIDURAL [Suspect]
     Indication: PRODUCT USED FOR UNKNOWN INDICATION
  2. CRESTOR [Concomitant]
     Indication: DIABETES MELLITUS
     Route: 048
     Dates: start: 20040101
  3. MONOPRIL [Concomitant]
     Indication: DIABETES MELLITUS
     Route: 048
     Dates: start: 19990101
  4. HUMIRA [Suspect]
     Indication: PSORIASIS
     Route: 058
     Dates: start: 20110428, end: 20111001
  5. NOVO RAPID [Concomitant]
     Indication: DIABETES MELLITUS
     Route: 058
     Dates: start: 20010101
  6. ASPIRIN [Concomitant]
     Indication: DIABETES MELLITUS
     Route: 048
     Dates: start: 20040101

REACTIONS (3)
  - NAUSEA [None]
  - VULVOVAGINAL PAIN [None]
  - MENORRHAGIA [None]
